FAERS Safety Report 4880743-6 (Version None)
Quarter: 2006Q1

REPORT INFORMATION
  Report Type: 
  Country: None (occurrence: None)
  Receive Date: 20060111
  Receipt Date: 20051020
  Transmission Date: 20060701
  Serious: No
  Sender: FDA-Public Use
  Company Number: 2005S1000221

PATIENT

DRUGS (2)
  1. CUBICIN [Suspect]
     Indication: BACTERAEMIA
  2. VANCOMYCIN [Concomitant]

REACTIONS (1)
  - PAROTITIS [None]
